FAERS Safety Report 5642869-9 (Version None)
Quarter: 2008Q1

REPORT INFORMATION
  Report Type: 
  Country: None (occurrence: None)
  Receive Date: 20080228
  Receipt Date: 20080225
  Transmission Date: 20080703
  Serious: Yes (Life-Threatening)
  Sender: FDA-Public Use
  Company Number: PHNU2008DE00836

PATIENT
  Sex: Female
  Weight: 78 kg

DRUGS (4)
  1. METO [Concomitant]
     Indication: HYPERTENSION
     Dosage: 100 MG, BID
     Route: 048
  2. KINZALMONO [Concomitant]
     Indication: HYPERTENSION
     Dosage: 40 MG, QD
     Route: 048
  3. NOVOTHYRAL [Concomitant]
     Indication: THYROID DISORDER
  4. FEMARA [Suspect]
     Indication: BREAST CANCER
     Dosage: UNK, UNK
     Route: 048
     Dates: start: 20070201, end: 20070828

REACTIONS (8)
  - ARTHROPATHY [None]
  - BONE DISORDER [None]
  - DEPRESSION [None]
  - HOT FLUSH [None]
  - RESTLESS LEGS SYNDROME [None]
  - SLEEP DISORDER [None]
  - SUICIDAL IDEATION [None]
  - TRICHORRHEXIS [None]
